FAERS Safety Report 9476802 (Version 6)
Quarter: 2015Q1

REPORT INFORMATION
  Report Type: Spontaneous
  Country: FR (occurrence: FR)
  Receive Date: 20130826
  Receipt Date: 20150223
  Transmission Date: 20150721
  Serious: Yes (Death, Hospitalization, Other)
  Sender: FDA-Public Use
  Company Number: FR-UCBSA-095842

PATIENT
  Sex: Female

DRUGS (18)
  1. CIMZIA [Suspect]
     Active Substance: CERTOLIZUMAB PEGOL
     Indication: PRODUCT USED FOR UNKNOWN INDICATION
     Dates: start: 20130528, end: 20130816
  2. PROCORALAN [Concomitant]
     Active Substance: IVABRADINE
  3. PULMICORT TURBUHALER [Concomitant]
     Active Substance: BUDESONIDE
  4. VOLTARENE [Concomitant]
     Active Substance: DICLOFENAC SODIUM
  5. SPIRIVA [Concomitant]
     Active Substance: TIOTROPIUM BROMIDE MONOHYDRATE
  6. MABTHERA [Suspect]
     Active Substance: RITUXIMAB
     Indication: PRODUCT USED FOR UNKNOWN INDICATION
     Dosage: UNK
     Dates: end: 20130527
  7. INEXIUM [Concomitant]
     Active Substance: ESOMEPRAZOLE
  8. LASILIX [Concomitant]
     Active Substance: FUROSEMIDE
  9. ISOPTIN [Concomitant]
     Active Substance: VERAPAMIL HYDROCHLORIDE
  10. PLAVIX [Concomitant]
     Active Substance: CLOPIDOGREL BISULFATE
  11. CELECOXIB. [Concomitant]
     Active Substance: CELECOXIB
     Dosage: DOSE: UNKNOWN
     Dates: end: 201308
  12. INEGY [Concomitant]
     Active Substance: EZETIMIBE\SIMVASTATIN
  13. APROVEL [Concomitant]
     Active Substance: IRBESARTAN
  14. BRICANYL [Concomitant]
     Active Substance: TERBUTALINE SULFATE
  15. SYSTANE (HYPROMELLOSE 2910 (4000 MPA.S)) [Concomitant]
     Active Substance: HYPROMELLOSE 2910 (4000 MPA.S)
  16. LEVOTHYROX [Concomitant]
     Active Substance: LEVOTHYROXINE
  17. DOMPERIDONE [Concomitant]
     Active Substance: DOMPERIDONE
  18. HYDROCORTISONE. [Concomitant]
     Active Substance: HYDROCORTISONE

REACTIONS (4)
  - Quadriparesis [Fatal]
  - Diplopia [Recovered/Resolved]
  - Neuromyelitis optica [Fatal]
  - Dysphagia [Not Recovered/Not Resolved]
